FAERS Safety Report 5724403-8 (Version None)
Quarter: 2008Q2

REPORT INFORMATION
  Report Type: 
  Country: None (occurrence: None)
  Receive Date: 20080430
  Receipt Date: 20080418
  Transmission Date: 20081010
  Serious: Yes (Other)
  Sender: FDA-Public Use
  Company Number: US-PFIZER INC-2008036015

PATIENT
  Age: 60 Year
  Sex: Female
  Weight: 81.6 kg

DRUGS (2)
  1. LYRICA [Suspect]
     Indication: MULTIPLE SCLEROSIS
  2. LYRICA [Suspect]
     Indication: FIBROMYALGIA

REACTIONS (3)
  - BALANCE DISORDER [None]
  - FALL [None]
  - SPEECH DISORDER [None]
